FAERS Safety Report 9448797 (Version 1)
Quarter: 2013Q3

REPORT INFORMATION
  Report Type: Spontaneous
  Country: GB (occurrence: GB)
  Receive Date: 20130808
  Receipt Date: 20130808
  Transmission Date: 20140515
  Serious: Yes (Other)
  Sender: FDA-Public Use
  Company Number: GB-WATSON-2013-13886

PATIENT
  Sex: 0

DRUGS (1)
  1. LISINOPRIL (UNKNOWN) [Suspect]
     Indication: HYPERTENSION
     Dosage: 10 MG, UNKNOWN
     Route: 048
     Dates: start: 20130315

REACTIONS (6)
  - Dizziness [Unknown]
  - Hypersensitivity [Unknown]
  - Cough [Unknown]
  - Lip swelling [Unknown]
  - Raynaud^s phenomenon [Unknown]
  - Swelling face [Unknown]
